FAERS Safety Report 19176741 (Version 4)
Quarter: 2021Q3

REPORT INFORMATION
  Report Type: Report from Study
  Country: US (occurrence: US)
  Receive Date: 20210424
  Receipt Date: 20210909
  Transmission Date: 20211014
  Serious: Yes (Hospitalization)
  Sender: FDA-Public Use
  Company Number: US-TAKEDA-US202000866

PATIENT
  Sex: Female
  Weight: 61 kg

DRUGS (20)
  1. TEDUGLUTIDE [Suspect]
     Active Substance: TEDUGLUTIDE
     Indication: SHORT-BOWEL SYNDROME
     Dosage: 0.31 MILLILITER, 1X/DAY:QD
     Route: 065
     Dates: start: 20190219
  2. VITAMIN B [Concomitant]
     Active Substance: VITAMIN B
     Dosage: 0.4 MILLIGRAM
     Route: 065
  3. LOMOTIL [LOPERAMIDE HYDROCHLORIDE] [Concomitant]
     Active Substance: LOPERAMIDE HYDROCHLORIDE
     Dosage: 2.5 MILLIGRAM
     Route: 065
  4. TEDUGLUTIDE [Suspect]
     Active Substance: TEDUGLUTIDE
     Indication: SHORT-BOWEL SYNDROME
     Dosage: 0.31 MILLILITER, 1X/DAY:QD
     Route: 065
     Dates: start: 20190219
  5. TEDUGLUTIDE [Suspect]
     Active Substance: TEDUGLUTIDE
     Dosage: 0.31 MILILITER (3.1 MILIGRAM)
     Route: 058
  6. LIPITOR [Concomitant]
     Active Substance: ATORVASTATIN CALCIUM
     Dosage: 10 MILLIGRAM
     Route: 065
  7. TEDUGLUTIDE [Suspect]
     Active Substance: TEDUGLUTIDE
     Indication: SHORT-BOWEL SYNDROME
     Dosage: 0.31 MILLILITER, 1X/DAY:QD
     Route: 065
     Dates: start: 20190219
  8. VITAMIN E NOS [Concomitant]
     Active Substance: .ALPHA.-TOCOPHEROL
     Dosage: 1000 INTERNATIONAL UNIT
     Route: 065
  9. LUNESTA [Concomitant]
     Active Substance: ESZOPICLONE
     Dosage: 1 MILLIGRAM
     Route: 065
  10. TEDUGLUTIDE [Suspect]
     Active Substance: TEDUGLUTIDE
     Dosage: 0.31 MILILITER (3.1 MILIGRAM)
     Route: 058
  11. TEDUGLUTIDE [Suspect]
     Active Substance: TEDUGLUTIDE
     Dosage: 0.31 MILILITER (3.1 MILIGRAM)
     Route: 058
  12. POTASSIUM [Concomitant]
     Active Substance: POTASSIUM
     Dosage: 595 MILLIGRAM
     Route: 065
  13. MAGNESIUM [Concomitant]
     Active Substance: MAGNESIUM
     Dosage: 100 MILLIGRAM
     Route: 065
  14. OXYBUTYNIN CHLORIDE. [Concomitant]
     Active Substance: OXYBUTYNIN CHLORIDE
     Dosage: 5 MILLIGRAM
     Route: 065
  15. ONDANSETRON HYDROCHLORIDE. [Concomitant]
     Active Substance: ONDANSETRON HYDROCHLORIDE
     Dosage: 4 MILLIGRAM
     Route: 050
  16. VITAMIN C [Concomitant]
     Active Substance: ASCORBIC ACID
     Dosage: 1000 MILLIGRAM
     Route: 065
  17. CALCIUM + D3 [CALCIUM;COLECALCIFEROL] [Concomitant]
     Active Substance: CALCIUM\CHOLECALCIFEROL
     Dosage: 600 MILLIGRAM
     Route: 065
  18. TEDUGLUTIDE [Suspect]
     Active Substance: TEDUGLUTIDE
     Indication: SHORT-BOWEL SYNDROME
     Dosage: 0.31 MILLILITER, 1X/DAY:QD
     Route: 065
     Dates: start: 20190219
  19. TEDUGLUTIDE [Suspect]
     Active Substance: TEDUGLUTIDE
     Dosage: 0.31 MILILITER (3.1 MILIGRAM)
     Route: 058
  20. LOMOTIL [LOPERAMIDE HYDROCHLORIDE] [Concomitant]
     Active Substance: LOPERAMIDE HYDROCHLORIDE
     Dosage: .025 MILLIGRAM
     Route: 065

REACTIONS (5)
  - Weight decreased [Unknown]
  - Therapy interrupted [Unknown]
  - Nausea [Unknown]
  - Product availability issue [Unknown]
  - Hospitalisation [Unknown]
